FAERS Safety Report 19518560 (Version 3)
Quarter: 2021Q3

REPORT INFORMATION
  Report Type: Spontaneous
  Country: US (occurrence: US)
  Receive Date: 20210712
  Receipt Date: 20210723
  Transmission Date: 20211014
  Serious: No
  Sender: FDA-Public Use
  Company Number: US-ORGANON-O2106USA002551

PATIENT
  Sex: Female

DRUGS (2)
  1. DULERA [Suspect]
     Active Substance: FORMOTEROL FUMARATE DIHYDRATE\MOMETASONE FUROATE
     Indication: HYPERSENSITIVITY
     Dosage: PRN
  2. DULERA [Suspect]
     Active Substance: FORMOTEROL FUMARATE DIHYDRATE\MOMETASONE FUROATE
     Indication: NASOPHARYNGITIS

REACTIONS (6)
  - COVID-19 [Recovered/Resolved]
  - Product use in unapproved indication [Unknown]
  - Poor quality device used [Unknown]
  - Product dose omission issue [Unknown]
  - Ageusia [Recovered/Resolved]
  - Device malfunction [Unknown]
